FAERS Safety Report 4993175-7 (Version None)
Quarter: 2006Q1

REPORT INFORMATION
  Report Type: 
  Country: None (occurrence: None)
  Receive Date: 20060313
  Receipt Date: 20051116
  Transmission Date: 20060701
  Serious: No
  Sender: FDA-Public Use
  Company Number: 2005-BP-18542BP

PATIENT
  Age: 76 Year
  Sex: Male
  Weight: 79.38 kg

DRUGS (5)
  1. SPIRIVA [Suspect]
     Indication: BRONCHOSPASM
     Dosage: 18 MCG (18 MCG, 1 IN 1 D),IH
     Dates: start: 20050901, end: 20050901
  2. SPIRIVA [Suspect]
     Indication: CHRONIC OBSTRUCTIVE PULMONARY DISEASE
     Dosage: 18 MCG (18 MCG, 1 IN 1 D),IH
     Dates: start: 20050901, end: 20050901
  3. ALBUTEROL SULFATE AUTOHALER [Concomitant]
  4. FLOMAX CAPSULES (TAMSULOSIN HYDROCHLORIDE) [Concomitant]
  5. PROSCAR [Concomitant]

REACTIONS (2)
  - ADVERSE DRUG REACTION [None]
  - URINARY TRACT OBSTRUCTION [None]
